FAERS Safety Report 7886174 (Version 3)
Quarter: 2012Q4

REPORT INFORMATION
  Report Type: 
  Country: US (occurrence: US)
  Receive Date: 20110405
  Receipt Date: 20120907
  Transmission Date: 20130627
  Serious: Yes (Other)
  Sender: FDA-Public Use
  Company Number: US-BAYER-2011-028379

PATIENT
  Age: 30 Year
  Sex: Female
  Weight: 72.56 kg

DRUGS (4)
  1. YAZ [Suspect]
     Dosage: UNK
     Dates: start: 200707, end: 200807
  2. YASMIN [Suspect]
     Dosage: UNK
     Dates: start: 200507, end: 200509
  3. METFORMIN [Concomitant]
     Dosage: UNK
     Dates: start: 2007
  4. SIMVASTATIN [Concomitant]
     Dosage: UNK
     Dates: start: 2007

REACTIONS (7)
  - Cholecystitis chronic [None]
  - Gallbladder injury [None]
  - Gallbladder disorder [None]
  - Pain [None]
  - Emotional distress [None]
  - Anhedonia [None]
  - Abdominal pain upper [None]
